FAERS Safety Report 11665356 (Version 1)
Quarter: 2015Q4

REPORT INFORMATION
  Report Type: Spontaneous
  Country: US (occurrence: US)
  Receive Date: 20151027
  Receipt Date: 20151027
  Transmission Date: 20160304
  Serious: No
  Sender: FDA-Public Use
  Company Number: US-TRIS PHARMA, INC.-1043441

PATIENT
  Age: 3 Month
  Sex: Male
  Weight: 5.45 kg

DRUGS (1)
  1. IBUPROFEN INFANTS [Suspect]
     Active Substance: IBUPROFEN
     Route: 048
     Dates: start: 20150410, end: 20150410

REACTIONS (2)
  - Off label use [Unknown]
  - Choking [Unknown]

NARRATIVE: CASE EVENT DATE: 20150410
